FAERS Safety Report 8127601-1 (Version None)
Quarter: 2012Q1

REPORT INFORMATION
  Report Type: 
  Country: None (occurrence: None)
  Receive Date: 20120210
  Receipt Date: 20120202
  Transmission Date: 20120608
  Serious: Yes (Hospitalization, Other)
  Sender: FDA-Public Use
  Company Number: US-BAYER-2011-037646

PATIENT
  Age: 27 Year
  Sex: Female
  Weight: 70.295 kg

DRUGS (5)
  1. WELLBUTRIN [Concomitant]
     Indication: TOBACCO USER
  2. LORTAB [Concomitant]
     Indication: BACK PAIN
     Dosage: UNK UNK, PRN
     Route: 048
  3. ZITHROMAX [Concomitant]
     Route: 048
  4. YASMIN [Suspect]
     Indication: MENORRHAGIA
     Dosage: UNK
     Dates: start: 20080101, end: 20090101
  5. DROSPIRENONE AND ETHINYL ESTRADIOL [Suspect]
     Dosage: UNK
     Dates: start: 20080101, end: 20090101

REACTIONS (10)
  - GALLBLADDER NON-FUNCTIONING [None]
  - PAIN [None]
  - EMOTIONAL DISTRESS [None]
  - GENERAL PHYSICAL HEALTH DETERIORATION [None]
  - ANHEDONIA [None]
  - BILIARY DYSKINESIA [None]
  - ORGAN FAILURE [None]
  - ANXIETY [None]
  - CHOLECYSTITIS CHRONIC [None]
  - INJURY [None]
